FAERS Safety Report 4478476-3 (Version None)
Quarter: 2004Q4

REPORT INFORMATION
  Report Type: 
  Country: None (occurrence: None)
  Receive Date: 20041014
  Receipt Date: 20041004
  Transmission Date: 20050328
  Serious: Yes (Other)
  Sender: FDA-Public Use
  Company Number: 2004073605

PATIENT
  Age: 39 Year
  Sex: Male
  Weight: 104.3273 kg

DRUGS (1)
  1. VISINE II EYE DROPS [Suspect]
     Indication: KERATOCONJUNCTIVITIS SICCA
     Dosage: 1-2 DROPS OU 3 X, OPTHALMIC
     Route: 047
     Dates: start: 20041004, end: 20041004

REACTIONS (2)
  - EYE IRRITATION [None]
  - EYE REDNESS [None]
